FAERS Safety Report 6600944-6 (Version None)
Quarter: 2010Q1

REPORT INFORMATION
  Report Type: 
  Country: None (occurrence: None)
  Receive Date: 20100225
  Receipt Date: 20100217
  Transmission Date: 20100710
  Serious: Yes (Other)
  Sender: FDA-Public Use
  Company Number: PHEH2010US02568

PATIENT
  Sex: Male

DRUGS (1)
  1. FANAPT [Suspect]
     Dosage: 6 MG, BID
     Route: 048
     Dates: start: 20100128, end: 20100206

REACTIONS (2)
  - DISORIENTATION [None]
  - ROAD TRAFFIC ACCIDENT [None]
